FAERS Safety Report 4404738-1 (Version None)
Quarter: 2004Q3

REPORT INFORMATION
  Report Type: 
  Country: None (occurrence: None)
  Receive Date: 20040720
  Receipt Date: 20040707
  Transmission Date: 20050211
  Serious: Yes (Other)
  Sender: FDA-Public Use
  Company Number: 2004223495GB

PATIENT
  Age: 62 Year
  Sex: Female
  Weight: 89.1 kg

DRUGS (4)
  1. CELEBREX [Suspect]
     Indication: SCOLIOSIS
     Dosage: ORAL
     Route: 048
     Dates: start: 20040419, end: 20040701
  2. PROCTOSEDYL (CINCHOCAINE HYDROCHLORIDE, ESCULOSIDE, FRAMYCETIN SULFATE [Concomitant]
  3. PARACETAMOL [Concomitant]
  4. ETORICOXIB (LEVOTHYROXINE) [Concomitant]

REACTIONS (1)
  - AMNESIA [None]
